FAERS Safety Report 8618724-9 (Version None)
Quarter: 2012Q3

REPORT INFORMATION
  Report Type: 
  Country: None (occurrence: None)
  Receive Date: 20120815
  Receipt Date: 20120815
  Transmission Date: 20120928
  Serious: Yes (Congenital Anomaly)
  Sender: FDA-Public Use
  Company Number: None

PATIENT
  Sex: Female

DRUGS (2)
  1. GEODON [Suspect]
     Indication: GENERALISED ANXIETY DISORDER
     Dosage: 60 MG TWICE A DAY ORAL
     Route: 048
     Dates: start: 20090301
  2. CYMBALTA [Suspect]
     Indication: MAJOR DEPRESSION
     Dosage: 60 MG DAILY PLUS 30 MG DAILY ONCE DAILY ORAL
     Route: 048
     Dates: start: 20090701

REACTIONS (4)
  - HIP DYSPLASIA [None]
  - MENINGOCELE [None]
  - MATERNAL DRUGS AFFECTING FOETUS [None]
  - TALIPES [None]
